FAERS Safety Report 19744388 (Version 1)
Quarter: 2021Q3

REPORT INFORMATION
  Report Type: Spontaneous
  Country: US (occurrence: US)
  Receive Date: 20210825
  Receipt Date: 20210825
  Transmission Date: 20211014
  Serious: No
  Sender: FDA-Public Use
  Company Number: US-PERRIGO-20US015454

PATIENT
  Age: 59 Year
  Sex: Female
  Weight: 62.59 kg

DRUGS (1)
  1. EVAMIST [Suspect]
     Active Substance: ESTRADIOL
     Indication: HORMONE REPLACEMENT THERAPY
     Dosage: UNKNOWN, SINGLE
     Route: 062
     Dates: start: 20201025, end: 20201025

REACTIONS (1)
  - Accidental exposure to product [Recovered/Resolved]

NARRATIVE: CASE EVENT DATE: 20201025
